FAERS Safety Report 24143418 (Version 4)
Quarter: 2024Q3

REPORT INFORMATION
  Report Type: Spontaneous
  Country: SE (occurrence: SE)
  Receive Date: 20240726
  Receipt Date: 20240918
  Transmission Date: 20241017
  Serious: Yes (Life-Threatening, Disabling)
  Sender: ABBVIE
  Company Number: None

PATIENT
  Age: 37 Year
  Sex: Female
  Weight: 65 kg

DRUGS (9)
  1. LINACLOTIDE [Suspect]
     Active Substance: LINACLOTIDE
     Indication: Product used for unknown indication
     Dosage: 290 MICROGRAM 1 CAPSULE IN THE MORNING
     Route: 048
  2. DROSPIRENONE\ETHINYL ESTRADIOL [Suspect]
     Active Substance: DROSPIRENONE\ETHINYL ESTRADIOL
     Indication: Product used for unknown indication
     Dosage: 0,02 MG/3 MG 1 TABLET DAILY
     Route: 048
  3. NYSTATIN [Suspect]
     Active Substance: NYSTATIN
     Indication: Product used for unknown indication
     Dosage: 100000 IU/ML 1 ML SOLUTION OVERNIGHT, 1 ML SOLUTION IN THE MORNING, 1 ML OF SOLUTION FOR LUNCH, 1...
     Route: 048
  4. BUDESONIDE\FORMOTEROL FUMARATE [Suspect]
     Active Substance: BUDESONIDE\FORMOTEROL FUMARATE
     Indication: Product used for unknown indication
     Dosage: 160 MICROGRAM/4,5 MICROGRAM/INHALATION 1 PUFF IN THE MORNING, 1 PUFF IN THE EVENING?EASYHALER
     Route: 055
  5. DROSPIRENONE [Suspect]
     Active Substance: DROSPIRENONE
     Indication: Product used for unknown indication
     Dosage: 0,02 MG/3 MG 1 TABLET IN THE MORNING
     Route: 048
  6. AMITRIPTYLINE [Suspect]
     Active Substance: AMITRIPTYLINE
     Indication: Product used for unknown indication
     Dosage: 25 MG 1 TABLET AT NIGHT
     Route: 048
  7. DROSPIRENONE\ETHINYL ESTRADIOL [Suspect]
     Active Substance: DROSPIRENONE\ETHINYL ESTRADIOL
     Indication: Product used for unknown indication
     Dosage: 0,02 MG/3 MG 1 TABLET IN THE MORNING
     Route: 048
  8. AMITRIPTYLINE HYDROCHLORIDE [Suspect]
     Active Substance: AMITRIPTYLINE HYDROCHLORIDE
     Indication: Product used for unknown indication
     Dosage: 50 MG 2 TABLETS AT NIGHT
     Route: 048
  9. BRINTELLIX [Suspect]
     Active Substance: VORTIOXETINE HYDROBROMIDE
     Indication: Product used for unknown indication
     Dosage: 15 MG 1 TABLET IN THE MORNING
     Route: 048

REACTIONS (50)
  - Presyncope [Unknown]
  - Dysuria [Recovered/Resolved]
  - Defaecation urgency [Not Recovered/Not Resolved]
  - Nervous system disorder [Not Recovered/Not Resolved]
  - Head discomfort [Unknown]
  - Gastrointestinal disorder [Unknown]
  - Dizziness [Unknown]
  - Diarrhoea [Recovering/Resolving]
  - Hyperacusis [Unknown]
  - Metabolic disorder [Unknown]
  - Ocular discomfort [Unknown]
  - Haemorrhage [Unknown]
  - Secretion discharge [Not Recovered/Not Resolved]
  - Volvulus [Unknown]
  - Discomfort [Not Recovered/Not Resolved]
  - Oral candidiasis [Recovered/Resolved]
  - Vulvovaginal pain [Not Recovered/Not Resolved]
  - Blood albumin decreased [Not Recovered/Not Resolved]
  - Gastrointestinal wall thickening [Not Recovered/Not Resolved]
  - Headache [Unknown]
  - Abdominal distension [Not Recovered/Not Resolved]
  - Dyspnoea [Not Recovered/Not Resolved]
  - Ascites [Not Recovered/Not Resolved]
  - Lymphadenopathy [Not Recovered/Not Resolved]
  - Heart rate increased [Not Recovered/Not Resolved]
  - Inflammatory marker increased [Unknown]
  - Skin disorder [Not Recovered/Not Resolved]
  - Constipation [Unknown]
  - Rash [Not Recovered/Not Resolved]
  - Fatigue [Not Recovered/Not Resolved]
  - Urine analysis abnormal [Not Recovered/Not Resolved]
  - Body temperature increased [Not Recovered/Not Resolved]
  - Pain [Not Recovered/Not Resolved]
  - Weight increased [Not Recovered/Not Resolved]
  - Thyroid pain [Not Recovered/Not Resolved]
  - Dry mouth [Not Recovered/Not Resolved]
  - Photophobia [Unknown]
  - Gait disturbance [Unknown]
  - Hypertension [Unknown]
  - Thyroid function test abnormal [Not Recovered/Not Resolved]
  - Breast swelling [Not Recovered/Not Resolved]
  - Lymph node pain [Not Recovered/Not Resolved]
  - Gastritis [Not Recovered/Not Resolved]
  - Eating disorder [Not Recovered/Not Resolved]
  - Oral pain [Unknown]
  - Abdominal pain [Not Recovered/Not Resolved]
  - Nausea [Not Recovered/Not Resolved]
  - Pyrexia [Unknown]
  - Gastrointestinal haemorrhage [Unknown]
  - Chest pain [Unknown]
